FAERS Safety Report 6568207-5 (Version None)
Quarter: 2010Q1

REPORT INFORMATION
  Report Type: 
  Country: None (occurrence: None)
  Receive Date: 20100203
  Receipt Date: 20100125
  Transmission Date: 20100710
  Serious: Yes (Other)
  Sender: FDA-Public Use
  Company Number: US-ROCHE-681355

PATIENT
  Age: 68 Year
  Sex: Female
  Weight: 66.2 kg

DRUGS (3)
  1. BONIVA [Suspect]
     Indication: OSTEOPOROSIS
     Route: 048
     Dates: start: 20050101, end: 20100101
  2. DIOVAN [Concomitant]
  3. SIMVASTATIN [Concomitant]

REACTIONS (4)
  - ARTHRALGIA [None]
  - HEADACHE [None]
  - IMPAIRED HEALING [None]
  - TOOTH EXTRACTION [None]
